FAERS Safety Report 5744252-4 (Version None)
Quarter: 2008Q2

REPORT INFORMATION
  Report Type: 
  Country: None (occurrence: None)
  Receive Date: 20080516
  Receipt Date: 20080516
  Transmission Date: 20081010
  Serious: Yes (Hospitalization)
  Sender: FDA-Public Use
  Company Number: None

PATIENT
  Age: 79 Year
  Sex: Female
  Weight: 49 kg

DRUGS (11)
  1. HYDROCHLOROTHIAZIDE [Suspect]
     Indication: HYPERTENSION
     Dosage: PO
     Route: 048
  2. SPIRVA [Concomitant]
  3. SIMVASTATIN [Concomitant]
  4. ALPRAZOLAM [Concomitant]
  5. VALSARTAN [Concomitant]
  6. AMLODIPINE [Concomitant]
  7. ASPIRIN [Concomitant]
  8. DONEZEPIL [Concomitant]
  9. METFORMIN HCL [Concomitant]
  10. METOPROLOL SUCCINATE [Concomitant]
  11. NICOTINE [Concomitant]

REACTIONS (5)
  - HYPOKALAEMIA [None]
  - TORSADE DE POINTES [None]
  - TREATMENT NONCOMPLIANCE [None]
  - VENTRICULAR TACHYCARDIA [None]
  - WRONG DRUG ADMINISTERED [None]
